FAERS Safety Report 24172703 (Version 2)
Quarter: 2024Q3

REPORT INFORMATION
  Report Type: Report from Study
  Country: TR (occurrence: TR)
  Receive Date: 20240805
  Receipt Date: 20240808
  Transmission Date: 20241017
  Serious: Yes (Other)
  Sender: ROCHE
  Company Number: TR-ROCHE-10000037296

PATIENT

DRUGS (4)
  1. TOCILIZUMAB [Suspect]
     Active Substance: TOCILIZUMAB
     Indication: COVID-19
     Dosage: 8 MG/KG (PATIENTS }=30 KG) OR 12 MG/KG (PATIENTS {30 KG) AS A SINGLE DOSE (MAXIMUM: 800 MG/DOSE).
     Route: 065
  2. TIGECYCLINE [Concomitant]
     Active Substance: TIGECYCLINE
  3. PIPERACILLIN AND TAZOBACTAM [Concomitant]
     Active Substance: PIPERACILLIN SODIUM\TAZOBACTAM SODIUM
  4. CEFTRIAXONE [Concomitant]
     Active Substance: CEFTRIAXONE\CEFTRIAXONE SODIUM

REACTIONS (7)
  - Acinetobacter infection [Unknown]
  - Staphylococcal infection [Unknown]
  - Klebsiella infection [Unknown]
  - Off label use [Unknown]
  - Enterococcal infection [Unknown]
  - Pseudomonas infection [Unknown]
  - Candida infection [Unknown]
